FAERS Safety Report 15081016 (Version 1)
Quarter: 2018Q2

REPORT INFORMATION
  Report Type: Spontaneous
  Country: IE (occurrence: IE)
  Receive Date: 20180628
  Receipt Date: 20180628
  Transmission Date: 20180711
  Serious: Yes (Death)
  Sender: FDA-Public Use
  Company Number: IE-ASTRAZENECA-2018SE81178

PATIENT
  Age: 74 Year
  Sex: Female

DRUGS (6)
  1. XANAX [Interacting]
     Active Substance: ALPRAZOLAM
     Route: 065
  2. ALPRAZOLAM. [Interacting]
     Active Substance: ALPRAZOLAM
     Route: 065
  3. MIRTAZAPINE. [Interacting]
     Active Substance: MIRTAZAPINE
     Route: 065
  4. LYRICA [Interacting]
     Active Substance: PREGABALIN
     Route: 065
  5. QUETIAPINE. [Suspect]
     Active Substance: QUETIAPINE
     Route: 048
  6. BENZODIAZEPINES [Interacting]
     Active Substance: BENZODIAZEPINE
     Route: 065

REACTIONS (2)
  - Alcohol interaction [Fatal]
  - Drug interaction [Fatal]
